FAERS Safety Report 5752055-X (Version None)
Quarter: 2008Q2

REPORT INFORMATION
  Report Type: 
  Country: None (occurrence: None)
  Receive Date: 20080527
  Receipt Date: 20080319
  Transmission Date: 20081010
  Serious: Yes (Other)
  Sender: FDA-Public Use
  Company Number: OPER20080051

PATIENT
  Age: 54 Year
  Sex: Female
  Weight: 56.6996 kg

DRUGS (3)
  1. OPANA ER [Suspect]
     Indication: BACK PAIN
     Dosage: 20 MG,BID, PER ORAL
     Route: 048
     Dates: start: 20080206, end: 20080307
  2. DEPAKOTE ER [Suspect]
     Indication: BIPOLAR DISORDER
     Dosage: 500 MG, 2 TABLETS QHS, ORAL
     Route: 048
  3. WELLBUTRIN XL [Suspect]
     Indication: BIPOLAR DISORDER
     Dosage: 150 MG, 1 TABLET BID, ORAL
     Route: 048

REACTIONS (4)
  - AMNESIA [None]
  - DRUG INTERACTION [None]
  - IMPULSIVE BEHAVIOUR [None]
  - MANIA [None]
